FAERS Safety Report 11708029 (Version 1)
Quarter: 2015Q4

REPORT INFORMATION
  Report Type: Spontaneous
  Country: US (occurrence: US)
  Receive Date: 20151104
  Receipt Date: 20151104
  Transmission Date: 20160304
  Serious: No
  Sender: FDA-Public Use
  Company Number: US-ELI_LILLY_AND_COMPANY-US201108003343

PATIENT
  Age: 69 Year
  Sex: Female

DRUGS (1)
  1. FORTEO [Suspect]
     Active Substance: TERIPARATIDE
     Indication: OSTEOPOROSIS
     Dosage: 20 UG, QD
     Route: 065

REACTIONS (25)
  - Musculoskeletal stiffness [Unknown]
  - Crepitations [Unknown]
  - Nasopharyngitis [Unknown]
  - Feeding disorder [Unknown]
  - Laziness [Unknown]
  - Drug dose omission [Unknown]
  - Feeling abnormal [Unknown]
  - Rhinorrhoea [Unknown]
  - Sinusitis [Unknown]
  - Abdominal pain upper [Unknown]
  - Diarrhoea [Unknown]
  - Burning sensation [Unknown]
  - Headache [Unknown]
  - Movement disorder [Unknown]
  - Discomfort [Unknown]
  - Pain [Unknown]
  - Dyspnoea [Unknown]
  - Cardiac disorder [Unknown]
  - Asthenia [Unknown]
  - Fatigue [Unknown]
  - Hyperhidrosis [Unknown]
  - Muscle spasms [Unknown]
  - Malaise [Unknown]
  - Decreased appetite [Unknown]
  - Colitis [Unknown]
